FAERS Safety Report 6842179-8 (Version None)
Quarter: 2010Q3

REPORT INFORMATION
  Report Type: 
  Country: None (occurrence: None)
  Receive Date: 20100714
  Receipt Date: 20070719
  Transmission Date: 20110219
  Serious: No
  Sender: FDA-Public Use
  Company Number: US-PFIZER INC-2007061809

PATIENT
  Sex: Female
  Weight: 49.4 kg

DRUGS (4)
  1. CHANTIX [Suspect]
     Indication: SMOKING CESSATION THERAPY
     Dates: start: 20070714
  2. SPIRIVA [Concomitant]
  3. ALBUTEROL [Concomitant]
  4. RESTORIL [Concomitant]
     Indication: SLEEP DISORDER

REACTIONS (2)
  - NAUSEA [None]
  - SOMNAMBULISM [None]
